FAERS Safety Report 7719900-X (Version None)
Quarter: 2011Q3

REPORT INFORMATION
  Report Type: 
  Country: None (occurrence: None)
  Receive Date: 20110831
  Receipt Date: 20110822
  Transmission Date: 20111222
  Serious: No
  Sender: FDA-Public Use
  Company Number: US-BIOGENIDEC-2011BI032427

PATIENT
  Sex: Female

DRUGS (5)
  1. AVONEX [Concomitant]
     Route: 030
     Dates: start: 20020107, end: 20050315
  2. BETASERON [Concomitant]
  3. TYSABRI [Suspect]
     Indication: MULTIPLE SCLEROSIS
     Route: 042
     Dates: start: 20100402
  4. AVONEX [Concomitant]
     Indication: MULTIPLE SCLEROSIS
     Route: 030
     Dates: start: 20100301
  5. TYSABRI [Suspect]
     Route: 042

REACTIONS (2)
  - INJECTION SITE MASS [None]
  - MEMORY IMPAIRMENT [None]
